FAERS Safety Report 7715584-5 (Version None)
Quarter: 2011Q3

REPORT INFORMATION
  Report Type: 
  Country: None (occurrence: None)
  Receive Date: 20110810
  Receipt Date: 20110510
  Transmission Date: 20111222
  Serious: No
  Sender: FDA-Public Use
  Company Number: 1000020873

PATIENT
  Age: 47 Year
  Sex: Female

DRUGS (8)
  1. NEXIUM [Concomitant]
  2. SAVELLA [Suspect]
     Indication: FIBROMYALGIA
     Dosage: 100 MG (50 MG, 2 IN 1 D), ORAL
     Route: 048
     Dates: start: 20110101, end: 20110101
  3. ACTOS (PIOGLITAZONE ) (PIOGLITAZONE) [Concomitant]
  4. GLIPIZIDE [Concomitant]
  5. SAVELLA [Suspect]
     Indication: FIBROMYALGIA
     Dosage: 12.5 MG(12.5 MG, 1 IN 1 D), ORAL,  25 MG (12.5 MG, 2 IN 1 D), ORA,  50 MG (25 MG, 2 IN 1 D), ORAL
     Route: 048
     Dates: start: 20110101, end: 20110101
  6. SAVELLA [Suspect]
     Indication: FIBROMYALGIA
     Dosage: 12.5 MG(12.5 MG, 1 IN 1 D), ORAL,  25 MG (12.5 MG, 2 IN 1 D), ORA,  50 MG (25 MG, 2 IN 1 D), ORAL
     Route: 048
     Dates: start: 20110101, end: 20110101
  7. SAVELLA [Suspect]
     Indication: FIBROMYALGIA
     Dosage: 12.5 MG(12.5 MG, 1 IN 1 D), ORAL,  25 MG (12.5 MG, 2 IN 1 D), ORA,  50 MG (25 MG, 2 IN 1 D), ORAL
     Route: 048
     Dates: start: 20110101, end: 20110101
  8. LEXAPRO (ESCITALOPRAM OXALATE) (20 MILLIGRAM, TABLETS) (ESCITALOPRAM O [Concomitant]

REACTIONS (3)
  - PALPITATIONS [None]
  - TREMOR [None]
  - DYSPNOEA [None]
